FAERS Safety Report 7273554-8 (Version None)
Quarter: 2011Q1

REPORT INFORMATION
  Report Type: 
  Country: None (occurrence: None)
  Receive Date: 20110203
  Receipt Date: 20100817
  Transmission Date: 20110831
  Serious: No
  Sender: FDA-Public Use
  Company Number: US-ABBOTT-10P-163-0665494-00

PATIENT
  Sex: Female
  Weight: 65.376 kg

DRUGS (5)
  1. SYNTHROID [Suspect]
     Dates: start: 20100816
  2. CALCIUM PLUS VITAMIN D [Concomitant]
     Indication: BONE DENSITY DECREASED
  3. SYNTHROID [Suspect]
     Indication: RADIOACTIVE IODINE THERAPY
     Dates: start: 20100804, end: 20100807
  4. SYNTHROID [Suspect]
     Dates: start: 20100809, end: 20100811
  5. IBUPROFEN [Concomitant]
     Indication: PAIN

REACTIONS (1)
  - DERMATITIS ALLERGIC [None]
